FAERS Safety Report 6443973-8 (Version None)
Quarter: 2009Q4

REPORT INFORMATION
  Report Type: 
  Country: None (occurrence: None)
  Receive Date: 20091116
  Receipt Date: 20091116
  Transmission Date: 20100525
  Serious: Yes (Disabling, Other)
  Sender: FDA-Public Use
  Company Number: None

PATIENT
  Age: 28 Year
  Sex: Female
  Weight: 62.5964 kg

DRUGS (2)
  1. MIRENA [Suspect]
     Indication: CONTRACEPTION
     Dates: start: 20080801, end: 20091113
  2. MIRENA [Suspect]
     Indication: MENORRHAGIA
     Dates: start: 20080801, end: 20091113

REACTIONS (3)
  - ACNE [None]
  - MENORRHAGIA [None]
  - METRORRHAGIA [None]
